FAERS Safety Report 13271235 (Version 6)
Quarter: 2018Q2

REPORT INFORMATION
  Report Type: Report from Study
  Country: EG (occurrence: EG)
  Receive Date: 20170226
  Receipt Date: 20180604
  Transmission Date: 20180711
  Serious: Yes (Hospitalization)
  Sender: FDA-Public Use
  Company Number: EG-B.I. PHARMACEUTICALS,INC./RIDGEFIELD-2017-BI-008931

PATIENT
  Age: 54 Year
  Sex: Female
  Weight: 80 kg

DRUGS (15)
  1. BIBF 1120 [Suspect]
     Active Substance: NINTEDANIB
     Indication: PLEURAL MESOTHELIOMA MALIGNANT
     Route: 048
     Dates: start: 20170210
  2. CONVENTIN [Concomitant]
     Indication: PAIN
     Route: 048
     Dates: start: 20170116
  3. EMEND [Concomitant]
     Active Substance: APREPITANT
     Indication: DRUG THERAPY
     Route: 048
     Dates: start: 20170209, end: 20170211
  4. SOLU CORTIFE [Concomitant]
     Indication: DRUG THERAPY
     Route: 030
     Dates: start: 20170414, end: 20170421
  5. SOLU CORTIFE [Concomitant]
     Indication: LOWER RESPIRATORY TRACT INFECTION
  6. ZOFRAN [Concomitant]
     Active Substance: ONDANSETRON HYDROCHLORIDE
     Indication: DRUG THERAPY
     Route: 030
     Dates: start: 20170210, end: 20170221
  7. FOLIC ACID. [Concomitant]
     Active Substance: FOLIC ACID
     Indication: PRODUCT USED FOR UNKNOWN INDICATION
     Route: 048
     Dates: start: 20170116
  8. VITAMIN B12 [Concomitant]
     Active Substance: CYANOCOBALAMIN
     Indication: PRODUCT USED FOR UNKNOWN INDICATION
     Route: 030
     Dates: start: 20170116
  9. PEMETREXED. [Suspect]
     Active Substance: PEMETREXED
     Indication: PLEURAL MESOTHELIOMA MALIGNANT
     Route: 042
     Dates: start: 20170209, end: 20170209
  10. DOLCYL [Concomitant]
     Indication: DIABETES MELLITUS
     Route: 048
     Dates: start: 2013
  11. G-CSF [Concomitant]
     Active Substance: GRANULOCYTE COLONY-STIMULATING FACTOR NOS
     Indication: PROPHYLAXIS
     Route: 058
     Dates: start: 20170210, end: 20170212
  12. CISPLATIN. [Suspect]
     Active Substance: CISPLATIN
     Indication: PLEURAL MESOTHELIOMA MALIGNANT
     Route: 042
     Dates: start: 20170209, end: 20170209
  13. CONTROLOC [Concomitant]
     Active Substance: PANTOPRAZOLE SODIUM
     Indication: GASTRITIS PROPHYLAXIS
     Dosage: STRENGTH: 40
     Route: 048
     Dates: start: 20170116
  14. CONCOR [Concomitant]
     Active Substance: BISOPROLOL FUMARATE
     Indication: HYPOTENSION
     Route: 048
     Dates: start: 2007
  15. DACTARIN ORAL GEL [Concomitant]
     Indication: MUCOSAL INFLAMMATION
     Route: 048
     Dates: start: 20170410

REACTIONS (6)
  - Lower respiratory tract infection [Recovered/Resolved]
  - Dehydration [Recovered/Resolved]
  - Decreased appetite [Recovered/Resolved]
  - Mucosal inflammation [Recovered/Resolved]
  - Vomiting [Recovered/Resolved]
  - Depression [Not Recovered/Not Resolved]

NARRATIVE: CASE EVENT DATE: 20170210
